FAERS Safety Report 4562197-2 (Version None)
Quarter: 2005Q1

REPORT INFORMATION
  Report Type: 
  Country: None (occurrence: None)
  Receive Date: 20050121
  Receipt Date: 20041206
  Transmission Date: 20050727
  Serious: Yes (Hospitalization)
  Sender: FDA-Public Use
  Company Number: US_0404101993

PATIENT
  Age: 35 Year
  Sex: Male
  Weight: 104 kg

DRUGS (42)
  1. ZYPREXA [Suspect]
     Dosage: 45 MG/1 AT BEDTIME
     Route: 048
     Dates: start: 19990101
  2. PROZAC [Concomitant]
  3. PROLIXIN [Concomitant]
  4. ARTANE [Concomitant]
  5. TRIAMTERENE AND HYDROCHLOROTHIAZIDE [Concomitant]
  6. ACCUPRIL [Concomitant]
  7. ACETYLSALICYLIC ACID SRT [Concomitant]
  8. METOCLOPRAMIDE (METOCLOPRAMIDE HYDROCHLORIDE) [Concomitant]
  9. DIPHENOXYLATE W/ATROPINE SULFATE [Concomitant]
  10. ATROPINE W/HYOSCINE/HYOSCYAMINE/PHENOBARBITAL [Concomitant]
  11. ULTRACET [Concomitant]
  12. PRILOSEC (OMEPRAZOLE RATIOPHARM) [Concomitant]
  13. LITHIUM [Concomitant]
  14. HALOPERIDOL (HALOPERIDOL DECANOATE) [Concomitant]
  15. VALPROATE BISMUTH [Concomitant]
  16. AMOXICILLIN [Concomitant]
  17. ACETAMINOPHEN AND HYDROCODONE BITARTRATE [Concomitant]
  18. CHLORHEXIDINE MOUTHWASH (CHLORHEXIDINE GLUCONATE) [Concomitant]
  19. ZITHROMAX [Concomitant]
  20. PROMETHAZINE [Concomitant]
  21. ULTRAM [Concomitant]
  22. NAPROXEN SODIUM [Concomitant]
  23. SKELAXIN [Concomitant]
  24. KETOROLAC [Concomitant]
  25. LEVAQUIN [Concomitant]
  26. ACETAMINOPHEN W/ PROPOXYPHENE HCL [Concomitant]
  27. METHYLPREDNISOLONE [Concomitant]
  28. HYDROCODONE W/APAP [Concomitant]
  29. DILTIAZEM ER (DILTIAZEM HYDROCHLORIDE) [Concomitant]
  30. MIGRAZONE [Concomitant]
  31. VICOPROFEN [Concomitant]
  32. LOTREL [Concomitant]
  33. RANITIDINE [Concomitant]
  34. CYCLOBENAZAPRINE [Concomitant]
  35. CIPRO [Concomitant]
  36. CARISOPRODOL [Concomitant]
  37. LORAZEPAM [Concomitant]
  38. AUGMENTIN '125' [Concomitant]
  39. IBUPROFEN [Concomitant]
  40. INDOMETHACIN [Concomitant]
  41. METHOCARBAMOL [Concomitant]
  42. INSULIN [Concomitant]

REACTIONS (23)
  - ANOREXIA [None]
  - ASTHENIA [None]
  - BACK PAIN [None]
  - BILIARY TRACT DISORDER [None]
  - BLOOD CHOLESTEROL ABNORMAL [None]
  - BODY TEMPERATURE INCREASED [None]
  - DEHYDRATION [None]
  - DIABETES MELLITUS [None]
  - DIABETIC KETOACIDOSIS [None]
  - DIARRHOEA [None]
  - DYSURIA [None]
  - GASTRITIS [None]
  - HEART RATE INCREASED [None]
  - HYPERPHAGIA [None]
  - HYPERTENSION [None]
  - HYPOGLYCAEMIA [None]
  - HYPONATRAEMIA [None]
  - LIPASE INCREASED [None]
  - NAUSEA [None]
  - OBESITY [None]
  - TACHYCARDIA [None]
  - VISION BLURRED [None]
  - VOMITING [None]
